FAERS Safety Report 6369051-4 (Version None)
Quarter: 2009Q3

REPORT INFORMATION
  Report Type: 
  Country: None (occurrence: None)
  Receive Date: 20090922
  Receipt Date: 20090911
  Transmission Date: 20100115
  Serious: Yes (Other)
  Sender: FDA-Public Use
  Company Number: PHHY2009DE27705

PATIENT
  Sex: Male

DRUGS (3)
  1. LEPONEX [Suspect]
     Indication: SCHIZOPHRENIA, CATATONIC TYPE
     Dosage: 400 MG PER DAY
     Route: 048
     Dates: start: 20040713
  2. METOHEXAL [Concomitant]
     Dosage: 100 UNK, UNK
  3. ZOPICLONE [Concomitant]

REACTIONS (4)
  - ALANINE AMINOTRANSFERASE INCREASED [None]
  - GAMMA-GLUTAMYLTRANSFERASE INCREASED [None]
  - GRANULOCYTOSIS [None]
  - LYMPHOPENIA [None]
